FAERS Safety Report 6255389-8 (Version None)
Quarter: 2009Q3

REPORT INFORMATION
  Report Type: 
  Country: None (occurrence: None)
  Receive Date: 20090702
  Receipt Date: 20090623
  Transmission Date: 20100115
  Serious: Yes (Other)
  Sender: FDA-Public Use
  Company Number: PHHY2009BR25778

PATIENT
  Sex: Female

DRUGS (1)
  1. TRILEPTAL [Suspect]
     Dosage: UNK

REACTIONS (5)
  - CONVULSION [None]
  - DEJA VU [None]
  - FATIGUE [None]
  - NERVOUSNESS [None]
  - VISUAL ACUITY REDUCED [None]
